FAERS Safety Report 20927531 (Version 1)
Quarter: 2022Q2

REPORT INFORMATION
  Report Type: Spontaneous
  Country: US (occurrence: US)
  Receive Date: 20220607
  Receipt Date: 20220607
  Transmission Date: 20220720
  Serious: No
  Sender: FDA-Public Use
  Company Number: US-PERRIGO-21US031207

PATIENT
  Sex: Female
  Weight: 56.689 kg

DRUGS (2)
  1. MINOXIDIL [Suspect]
     Active Substance: MINOXIDIL
     Indication: Alopecia
     Dosage: 1/2 CAPFUL, QD
     Route: 061
     Dates: start: 2018, end: 2021
  2. MINOXIDIL [Suspect]
     Active Substance: MINOXIDIL
     Dosage: APPROXIMATELY 1 TEASPOON, QD
     Route: 061
     Dates: end: 20211117

REACTIONS (2)
  - Wrong technique in product usage process [Recovered/Resolved]
  - Product administered at inappropriate site [Recovered/Resolved]

NARRATIVE: CASE EVENT DATE: 20180101
